FAERS Safety Report 24296516 (Version 1)
Quarter: 2024Q3

REPORT INFORMATION
  Report Type: Report from Study
  Country: US (occurrence: None)
  Receive Date: 20240909
  Receipt Date: 20240909
  Transmission Date: 20241017
  Serious: Yes (Hospitalization, Other)
  Sender: ASTRAZENECA
  Company Number: 2024A201989

PATIENT
  Sex: Female
  Weight: 49 kg

DRUGS (1)
  1. CALQUENCE [Suspect]
     Active Substance: ACALABRUTINIB
     Indication: Chronic lymphocytic leukaemia
     Route: 048
     Dates: start: 20220810

REACTIONS (5)
  - Fall [Unknown]
  - Femoral neck fracture [Unknown]
  - Hip fracture [Unknown]
  - Oxygen consumption increased [Unknown]
  - COVID-19 [Unknown]
